FAERS Safety Report 17805022 (Version 2)
Quarter: 2020Q2

REPORT INFORMATION
  Report Type: Report from Study
  Country: None (occurrence: CA)
  Receive Date: 20200520
  Receipt Date: 20200602
  Transmission Date: 20200714
  Serious: Yes (Hospitalization)
  Sender: FDA-Public Use
  Company Number: CA-ABBVIE-20K-028-3287281-00

PATIENT
  Age: 59 Year
  Sex: Female

DRUGS (3)
  1. SKYRIZI [Suspect]
     Active Substance: RISANKIZUMAB-RZAA
     Route: 058
     Dates: start: 20200527
  2. SKYRIZI [Suspect]
     Active Substance: RISANKIZUMAB-RZAA
     Route: 058
     Dates: start: 2020, end: 2020
  3. SKYRIZI [Suspect]
     Active Substance: RISANKIZUMAB-RZAA
     Indication: PSORIASIS
     Route: 058
     Dates: start: 20200129, end: 2020

REACTIONS (15)
  - Dyspnoea [Unknown]
  - Decreased appetite [Unknown]
  - Muscle spasms [Not Recovered/Not Resolved]
  - Heart rate abnormal [Unknown]
  - Tinnitus [Unknown]
  - Flatulence [Unknown]
  - Hepatic enzyme increased [Recovered/Resolved]
  - Incontinence [Unknown]
  - Joint swelling [Unknown]
  - Post procedural complication [Unknown]
  - Urinary tract infection [Not Recovered/Not Resolved]
  - Musculoskeletal disorder [Unknown]
  - Weight decreased [Unknown]
  - Malaise [Unknown]
  - Angina pectoris [Unknown]

NARRATIVE: CASE EVENT DATE: 2020
